FAERS Safety Report 9223027 (Version 2)
Quarter: 2013Q2

REPORT INFORMATION
  Report Type: Spontaneous
  Country: US (occurrence: US)
  Receive Date: 20130410
  Receipt Date: 20130521
  Transmission Date: 20140414
  Serious: Yes (Death, Other)
  Sender: FDA-Public Use
  Company Number: US-ROCHE-1209900

PATIENT
  Age: 25 Year
  Sex: Female

DRUGS (1)
  1. ACTILYSE [Suspect]
     Indication: PULMONARY EMBOLISM
     Route: 065

REACTIONS (5)
  - Death [Fatal]
  - Pupils unequal [Unknown]
  - Hemiplegia [Unknown]
  - Pulmonary hypertension [Unknown]
  - Drug ineffective [Unknown]
